FAERS Safety Report 8774268 (Version 2)
Quarter: 2012Q4

REPORT INFORMATION
  Report Type: Report from Study
  Country: US (occurrence: US)
  Receive Date: 20120907
  Receipt Date: 20121031
  Transmission Date: 20130627
  Serious: No
  Sender: FDA-Public Use
  Company Number: US-009507513-1208USA006823

PATIENT
  Sex: Female
  Weight: 86.17 kg

DRUGS (10)
  1. VICTRELIS [Suspect]
     Indication: HEPATITIS C
     Dosage: 4 DF, tid
  2. RIBASPHERE [Suspect]
     Indication: HEPATITIS C
     Dosage: 800 mg, qd
     Route: 048
     Dates: start: 20111220
  3. RIBASPHERE [Suspect]
     Dosage: In diveded doses
     Route: 048
  4. FUROSEMIDE [Concomitant]
  5. INTERFERON ALFA-2A [Concomitant]
     Indication: HEPATITIS C
     Dosage: 180 Microgram, qw
     Dates: start: 20111220
  6. INTERFERON ALFA-2A [Concomitant]
     Dosage: 90 Microgram, qw
  7. AMLODIPINE [Concomitant]
  8. KLOR-CON [Concomitant]
  9. IBUPROFEN [Concomitant]
  10. NEUPOGEN [Concomitant]
     Dosage: UNK

REACTIONS (9)
  - Oedema [Unknown]
  - Weight increased [Unknown]
  - White blood cell count decreased [Unknown]
  - Dyspnoea [Unknown]
  - Dyspnoea [Unknown]
  - Headache [Unknown]
  - Weight decreased [Unknown]
  - Vomiting [Unknown]
  - Anaemia [Unknown]
